FAERS Safety Report 10980384 (Version 2)
Quarter: 2015Q2

REPORT INFORMATION
  Report Type: Report from Study
  Country: KE (occurrence: KE)
  Receive Date: 20150402
  Receipt Date: 20150422
  Transmission Date: 20150821
  Serious: Yes (Death, Hospitalization, Other)
  Sender: FDA-Public Use
  Company Number: KE-GILEAD-2015-0145809

PATIENT
  Age: 38 Year
  Sex: Female

DRUGS (12)
  1. ALBENDAZOLE [Suspect]
     Active Substance: ALBENDAZOLE
     Indication: PRODUCT USED FOR UNKNOWN INDICATION
     Dosage: UNK
     Route: 065
     Dates: start: 20141001, end: 20141001
  2. RANITIDINE                         /00550802/ [Concomitant]
  3. TENOFOVIR DISOPROXIL FUMARATE [Suspect]
     Active Substance: TENOFOVIR DISOPROXIL FUMARATE
     Indication: HIV INFECTION
     Dosage: UNK
     Route: 065
     Dates: start: 20141001, end: 20150323
  4. RALTEGRAVIR [Suspect]
     Active Substance: RALTEGRAVIR
     Indication: HIV INFECTION
     Dosage: UNK
     Route: 065
     Dates: start: 20141001, end: 20141217
  5. FLUCONAZOLE. [Suspect]
     Active Substance: FLUCONAZOLE
     Indication: PRODUCT USED FOR UNKNOWN INDICATION
     Dosage: UNK
     Route: 065
     Dates: start: 20141001, end: 20150318
  6. EFAVIRENZ [Suspect]
     Active Substance: EFAVIRENZ
     Indication: HIV INFECTION
     Dosage: UNK
     Route: 065
     Dates: start: 20141001, end: 20150323
  7. COTRIMOXAZOLE [Suspect]
     Active Substance: SULFAMETHOXAZOLE\TRIMETHOPRIM
     Indication: PRODUCT USED FOR UNKNOWN INDICATION
     Dosage: UNK
     Route: 065
     Dates: start: 20140919, end: 20150323
  8. EMTRICITABINE [Suspect]
     Active Substance: EMTRICITABINE
     Indication: HIV INFECTION
     Dosage: UNK
     Route: 065
     Dates: start: 20141001, end: 20150323
  9. AZITHROMYCIN [Suspect]
     Active Substance: AZITHROMYCIN ANHYDROUS
     Indication: PRODUCT USED FOR UNKNOWN INDICATION
     Dosage: UNK
     Route: 065
     Dates: start: 20141001, end: 20141005
  10. PYRIDOXINE                         /00058902/ [Suspect]
     Active Substance: PYRIDOXINE
     Indication: PRODUCT USED FOR UNKNOWN INDICATION
     Dosage: UNK
     Route: 065
     Dates: start: 20141001, end: 20150323
  11. ISONIAZID. [Suspect]
     Active Substance: ISONIAZID
     Indication: PRODUCT USED FOR UNKNOWN INDICATION
     Dosage: UNK
     Route: 065
     Dates: start: 20141001
  12. OMEPRAZOLE                         /00661202/ [Concomitant]

REACTIONS (4)
  - Muscular weakness [Unknown]
  - Death [Fatal]
  - Pyelonephritis [Unknown]
  - Tuberculosis [Unknown]

NARRATIVE: CASE EVENT DATE: 20150131
